FAERS Safety Report 9894659 (Version 1)
Quarter: 2014Q1

REPORT INFORMATION
  Report Type: Report from Study
  Country: JP (occurrence: JP)
  Receive Date: 20140213
  Receipt Date: 20140213
  Transmission Date: 20141002
  Serious: Yes (Life-Threatening)
  Sender: FDA-Public Use
  Company Number: JP-B.I. PHARMACEUTICALS,INC./RIDGEFIELD-2014-BI-06422NB

PATIENT
  Age: 56 Year
  Sex: Male
  Weight: 62 kg

DRUGS (9)
  1. TRAZENTA [Suspect]
     Indication: TYPE 2 DIABETES MELLITUS
     Dosage: 5 MG
     Route: 048
     Dates: start: 20140108, end: 20140204
  2. SISAAL [Concomitant]
     Dosage: 45 MG
     Route: 048
     Dates: end: 20140204
  3. TRANEXAMIC ACID [Concomitant]
     Dosage: 750 MG
     Route: 048
     Dates: end: 20140204
  4. MAGLAX [Concomitant]
     Dosage: 990 MG
     Route: 048
     Dates: end: 20140204
  5. CALONAL [Concomitant]
     Dosage: 1200 MG
     Route: 048
     Dates: end: 20140204
  6. CARBAZOCHROME SODIUM SULFONATE HYDRATE [Concomitant]
     Dosage: 90 MG
     Route: 048
     Dates: end: 20140204
  7. FAMOTIDINE D [Concomitant]
     Dosage: 20 MG
     Route: 048
     Dates: end: 20140204
  8. BROTIZOLAM OD [Concomitant]
     Dosage: 0.25 MG
     Route: 048
     Dates: end: 20140204
  9. GASOAL [Concomitant]
     Dosage: 120 MG
     Route: 048
     Dates: end: 20140204

REACTIONS (2)
  - Duodenal stenosis [Not Recovered/Not Resolved]
  - Malignant neoplasm progression [Not Recovered/Not Resolved]
